FAERS Safety Report 8375179-X (Version None)
Quarter: 2012Q2

REPORT INFORMATION
  Report Type: 
  Country: None (occurrence: None)
  Receive Date: 20120521
  Receipt Date: 20120518
  Transmission Date: 20120825
  Serious: Yes (Death)
  Sender: FDA-Public Use
  Company Number: US-AMGEN-USASP2011064192

PATIENT
  Age: 58 Year
  Sex: Female
  Weight: 61.5 kg

DRUGS (1)
  1. NPLATE [Suspect]
     Indication: THROMBOCYTOPENIA
     Dosage: 250 MUG, ONE TIME DOSE
     Route: 058
     Dates: start: 20101222, end: 20101222

REACTIONS (1)
  - OVARIAN CANCER [None]
